FAERS Safety Report 9502170 (Version 2)
Quarter: 2013Q3

REPORT INFORMATION
  Report Type: Spontaneous
  Country: CA (occurrence: CA)
  Receive Date: 20130905
  Receipt Date: 20130920
  Transmission Date: 20140515
  Serious: Yes (Hospitalization, Other)
  Sender: FDA-Public Use
  Company Number: CA-AMGEN-CANSP2013061620

PATIENT
  Age: 84 Year
  Sex: Female
  Weight: 68.7 kg

DRUGS (23)
  1. PROLIA [Suspect]
     Indication: OSTEOPOROSIS POSTMENOPAUSAL
     Dosage: 60 MG, Q6MO
     Route: 058
     Dates: start: 20120127
  2. APO-ATENIDONE [Concomitant]
     Indication: HYPERTENSION
     Dosage: UNK UNK, QD
     Route: 048
     Dates: start: 2005, end: 20110816
  3. ORLISTAT [Concomitant]
     Indication: WEIGHT DECREASED
     Dosage: 120 MG, QD
     Route: 048
     Dates: start: 2010, end: 201202
  4. AVAPRO [Concomitant]
     Dosage: 150 MG, QD
     Route: 048
     Dates: start: 2007, end: 20120506
  5. ALLOPURINOL [Concomitant]
     Indication: GOUT
     Dosage: 100 MG, QD
     Route: 048
     Dates: start: 1997
  6. ELTROXIN [Concomitant]
     Indication: THYROID DISORDER
     Dosage: 0.05 MG, QD
     Route: 048
     Dates: start: 1968, end: 20120628
  7. ZOPICLONE [Concomitant]
     Indication: INSOMNIA
     Dosage: 7.5 MG, AS NECESSARY
     Route: 048
     Dates: start: 2011
  8. ASPIRIN [Concomitant]
     Dosage: 81 MG, QD
     Route: 048
     Dates: start: 2009
  9. SALMON OIL [Concomitant]
     Dosage: 1000 MG, QD
     Route: 048
     Dates: start: 2007
  10. OMEGA 3                            /01334101/ [Concomitant]
  11. ROBAX PLATINUM [Concomitant]
     Indication: BACK PAIN
     Dosage: UNK UNK, AS NECESSARY
     Route: 048
     Dates: start: 2006, end: 201204
  12. TYLENOL                            /00020001/ [Concomitant]
     Indication: BACK PAIN
     Dosage: 650 MG, AS NECESSARY
     Route: 048
     Dates: start: 2002
  13. GLUCOSAMINE CHONDROITIN            /01430901/ [Concomitant]
     Dosage: UNK UNK, QD
     Route: 048
     Dates: start: 1997
  14. CALCIUM CITRATE WITH VITAMIN D [Concomitant]
     Dosage: UNK
     Route: 048
     Dates: start: 2002
  15. CENTRUM SELECT 50+ [Concomitant]
     Dosage: UNK UNK, QD
     Route: 048
     Dates: start: 2002
  16. VITAMIN D                          /00107901/ [Concomitant]
     Dosage: 50000 IU, QD
     Route: 048
     Dates: start: 2002
  17. SYNTHROID [Concomitant]
     Indication: THYROID DISORDER
     Dosage: UNK UNK, QD
     Route: 048
     Dates: start: 20120629
  18. IRBESARTAN [Concomitant]
     Indication: HYPERTENSION
     Dosage: 150 MG, QD
     Route: 048
     Dates: start: 20120507
  19. DICLOFENAC [Concomitant]
     Indication: PAIN
     Dosage: 1 UNIT, AS NECESSARY
     Route: 061
     Dates: start: 20110428, end: 201201
  20. TURMERIC                           /01079602/ [Concomitant]
     Indication: ARTHRITIS
     Dosage: UNK UNK, QD
     Route: 048
     Dates: start: 201207
  21. PLAVIX [Concomitant]
     Indication: THROMBOSIS
     Dosage: 75 MG, QD
     Route: 048
     Dates: start: 20130813
  22. AMLODIPINE [Concomitant]
     Indication: HYPERTENSION
     Dosage: 5 MG, QD
     Route: 048
     Dates: start: 20130817
  23. QUININE SULFATE [Concomitant]
     Dosage: 300 MG, UNK
     Route: 048

REACTIONS (7)
  - Carotid artery occlusion [Unknown]
  - Hypoaesthesia [Unknown]
  - Muscular weakness [Unknown]
  - Aphasia [Unknown]
  - Transient ischaemic attack [Recovered/Resolved]
  - Carotid artery stenosis [Recovered/Resolved]
  - Syncope [Recovered/Resolved]
